FAERS Safety Report 7185924-7 (Version None)
Quarter: 2010Q4

REPORT INFORMATION
  Report Type: 
  Country: None (occurrence: None)
  Receive Date: 20101222
  Receipt Date: 20101220
  Transmission Date: 20110411
  Serious: Yes (Hospitalization)
  Sender: FDA-Public Use
  Company Number: GXKR2009DE02634

PATIENT
  Age: 74 Year
  Sex: Female
  Weight: 68 kg

DRUGS (9)
  1. TORSEMIDE [Interacting]
     Indication: HYPERTENSION
     Dosage: 10 MG, QD
     Route: 048
     Dates: start: 20080825, end: 20080920
  2. XIPAMIDE (NGX) [Interacting]
     Indication: HYPERTENSION
     Dosage: 20 MG/DAILY
     Route: 048
     Dates: start: 20080401, end: 20080911
  3. BISOPROLOL FUMARATE [Suspect]
     Indication: HYPERTENSION
     Dosage: 5 MG, 2 IN DAY
     Route: 048
  4. ENALAPRIL MALEATE [Interacting]
     Indication: RENAL FAILURE
     Dosage: 10 MG/DAILY
     Route: 048
     Dates: start: 20080401
  5. FALITHROM ^FAHLBERG^ [Concomitant]
     Route: 048
  6. METHOTREXATE [Concomitant]
     Route: 048
  7. OMEPRAZOL ^STADA^ [Concomitant]
     Route: 048
  8. PREDNISOLONE [Concomitant]
     Route: 048
  9. SIMVAHEXAL [Concomitant]
     Route: 048

REACTIONS (2)
  - DEHYDRATION [None]
  - HYPOTENSION [None]
